FAERS Safety Report 23489453 (Version 1)
Quarter: 2024Q1

REPORT INFORMATION
  Report Type: Spontaneous
  Country: US (occurrence: None)
  Receive Date: 20240206
  Receipt Date: 20240206
  Transmission Date: 20240410
  Serious: No
  Sender: FDA-Public Use
  Company Number: US-ROCHE-3456183

PATIENT
  Sex: Female

DRUGS (14)
  1. XOLAIR [Suspect]
     Active Substance: OMALIZUMAB
     Indication: Rhinitis allergic
     Dosage: STRENGTH: 150MG/ML
     Route: 058
  2. XOLAIR [Suspect]
     Active Substance: OMALIZUMAB
  3. XOLAIR [Suspect]
     Active Substance: OMALIZUMAB
  4. DICYCLOMINE [Concomitant]
     Active Substance: DICYCLOMINE HYDROCHLORIDE
  5. METHOTREXATE [Concomitant]
     Active Substance: METHOTREXATE
     Dosage: 1000MG/4
  6. MIDODRINE [Concomitant]
     Active Substance: MIDODRINE
  7. PANTOPRAZOLE [Concomitant]
     Active Substance: PANTOPRAZOLE
  8. ASPIRIN [Concomitant]
     Active Substance: ASPIRIN
  9. BACLOFEN [Concomitant]
     Active Substance: BACLOFEN
  10. FAMOTIDINE [Concomitant]
     Active Substance: FAMOTIDINE
  11. VITAMINS [Concomitant]
     Active Substance: VITAMINS
  12. PREDNISONE [Concomitant]
     Active Substance: PREDNISONE
  13. REPATHA [Concomitant]
     Active Substance: EVOLOCUMAB
  14. VITAMIN D3 [Concomitant]
     Active Substance: CHOLECALCIFEROL

REACTIONS (6)
  - Asthma [Not Recovered/Not Resolved]
  - Dyspnoea [Not Recovered/Not Resolved]
  - Memory impairment [Not Recovered/Not Resolved]
  - Brain fog [Not Recovered/Not Resolved]
  - Off label use [Unknown]
  - Injection site reaction [Unknown]
